FAERS Safety Report 11480900 (Version 1)
Quarter: 2015Q3

REPORT INFORMATION
  Report Type: Spontaneous
  Country: US (occurrence: US)
  Receive Date: 20150909
  Receipt Date: 20150909
  Transmission Date: 20151125
  Serious: No
  Sender: FDA-Public Use
  Company Number: US-JAZZ-2014-US-015901

PATIENT
  Age: 60 Year
  Sex: Male
  Weight: 95.24 kg

DRUGS (3)
  1. XYREM [Suspect]
     Active Substance: SODIUM OXYBATE
     Dosage: 3.75 G, BID
     Route: 048
     Dates: start: 201412
  2. XYREM [Suspect]
     Active Substance: SODIUM OXYBATE
     Indication: NARCOLEPSY
     Dosage: 2.25 G, BID
     Route: 048
     Dates: start: 20141201, end: 201412
  3. XYREM [Suspect]
     Active Substance: SODIUM OXYBATE
     Indication: CATAPLEXY
     Dosage: 3 G, BID
     Route: 048
     Dates: start: 201412, end: 201412

REACTIONS (7)
  - Movement disorder [Recovered/Resolved]
  - Nausea [Not Recovered/Not Resolved]
  - Abnormal dreams [Unknown]
  - Panic attack [Recovered/Resolved]
  - Burning sensation [Recovered/Resolved]
  - Dyspnoea [Unknown]
  - Pollakiuria [Unknown]

NARRATIVE: CASE EVENT DATE: 201412
